FAERS Safety Report 13673262 (Version 7)
Quarter: 2017Q4

REPORT INFORMATION
  Report Type: Report from Study
  Country: CA (occurrence: CA)
  Receive Date: 20170621
  Receipt Date: 20171020
  Transmission Date: 20180320
  Serious: Yes (Hospitalization)
  Sender: FDA-Public Use
  Company Number: CA-BIOGEN-2017BI00419532

PATIENT
  Age: 33 Year
  Sex: Female

DRUGS (1)
  1. TYSABRI [Suspect]
     Active Substance: NATALIZUMAB
     Indication: MULTIPLE SCLEROSIS
     Dosage: INFUSED OVER 1 HOUR
     Route: 042
     Dates: start: 20160413

REACTIONS (5)
  - Gait disturbance [Unknown]
  - Cough [Not Recovered/Not Resolved]
  - Papilloma viral infection [Unknown]
  - Diverticulitis [Unknown]
  - Uterine carcinoma in situ [Unknown]

NARRATIVE: CASE EVENT DATE: 20170612
